FAERS Safety Report 16439833 (Version 1)
Quarter: 2019Q2

REPORT INFORMATION
  Report Type: Spontaneous
  Country: US (occurrence: US)
  Receive Date: 20190617
  Receipt Date: 20190617
  Transmission Date: 20190711
  Serious: No
  Sender: FDA-Public Use
  Company Number: US-PFIZER INC-2019255265

PATIENT
  Age: 74 Year
  Sex: Female

DRUGS (1)
  1. MEDROL [Suspect]
     Active Substance: METHYLPREDNISOLONE
     Dosage: UNK

REACTIONS (8)
  - Petechiae [Unknown]
  - Oedema [Unknown]
  - Dysphagia [Unknown]
  - Purpura [Unknown]
  - Epistaxis [Unknown]
  - Swelling [Unknown]
  - Speech disorder [Unknown]
  - Drug hypersensitivity [Not Recovered/Not Resolved]
